FAERS Safety Report 17689898 (Version 3)
Quarter: 2020Q2

REPORT INFORMATION
  Report Type: Spontaneous
  Country: US (occurrence: US)
  Receive Date: 20200421
  Receipt Date: 20200616
  Transmission Date: 20200714
  Serious: No
  Sender: FDA-Public Use
  Company Number: US-ACTELION-A-NJ2020-204341

PATIENT
  Sex: Female
  Weight: 91.16 kg

DRUGS (4)
  1. OPSUMIT [Suspect]
     Active Substance: MACITENTAN
     Indication: PULMONARY ARTERIAL HYPERTENSION
     Dosage: 10 MG, QD
     Route: 048
  2. VELETRI [Suspect]
     Active Substance: EPOPROSTENOL
     Indication: PULMONARY ARTERIAL HYPERTENSION
     Dosage: 14 NG/KG, PER MIN
     Route: 042
  3. VELETRI [Suspect]
     Active Substance: EPOPROSTENOL
     Dosage: 13 NG/KG, PER MIN
     Route: 042
  4. XARELTO [Concomitant]
     Active Substance: RIVAROXABAN

REACTIONS (9)
  - Fatigue [Unknown]
  - Catheter site irritation [Unknown]
  - Pain in jaw [Unknown]
  - Feeling abnormal [Unknown]
  - Arthralgia [Unknown]
  - Catheter site erythema [Unknown]
  - Oedema [Unknown]
  - Chest discomfort [Unknown]
  - Fluid retention [Unknown]
